FAERS Safety Report 5391274-1 (Version None)
Quarter: 2007Q3

REPORT INFORMATION
  Report Type: 
  Country: None (occurrence: None)
  Receive Date: 20070719
  Receipt Date: 20070711
  Transmission Date: 20080115
  Serious: Yes (Hospitalization, Other)
  Sender: FDA-Public Use
  Company Number: US-AVENTIS-200715049US

PATIENT

DRUGS (1)
  1. APIDRA [Suspect]
     Dosage: DOSE: UNK

REACTIONS (2)
  - NAUSEA [None]
  - VOMITING [None]
